FAERS Safety Report 18529493 (Version 1)
Quarter: 2020Q4

REPORT INFORMATION
  Report Type: Spontaneous
  Country: CH (occurrence: CH)
  Receive Date: 20201120
  Receipt Date: 20201120
  Transmission Date: 20210114
  Serious: Yes (Other)
  Sender: FDA-Public Use
  Company Number: CH-SEATTLE GENETICS-2020SGN05156

PATIENT

DRUGS (2)
  1. PEMBROLIZUMAB. [Suspect]
     Active Substance: PEMBROLIZUMAB
     Indication: HODGKIN^S DISEASE
     Dosage: 200 MILLIGRAM, Q3WEEKS
     Route: 042
  2. ADCETRIS [Suspect]
     Active Substance: BRENTUXIMAB VEDOTIN
     Indication: HODGKIN^S DISEASE
     Dosage: 1.8 MILLIGRAM/KILOGRAM
     Route: 042
     Dates: start: 2018

REACTIONS (3)
  - Pneumonia [Unknown]
  - Hodgkin^s disease [Unknown]
  - Meningitis [Unknown]

NARRATIVE: CASE EVENT DATE: 2019
